FAERS Safety Report 11202318 (Version 1)
Quarter: 2015Q2

REPORT INFORMATION
  Report Type: Spontaneous
  Country: US (occurrence: None)
  Receive Date: 20150618
  Receipt Date: 20150618
  Transmission Date: 20150821
  Serious: Yes (Hospitalization)
  Sender: FDA-Public Use
  Company Number: None

PATIENT
  Age: 70 Year
  Sex: Male

DRUGS (2)
  1. HYDROMORPHONE [Suspect]
     Active Substance: HYDROMORPHONE
     Dosage: 4 MG OTHER
     Route: 048
     Dates: start: 20150513
  2. LORAZEPAM. [Suspect]
     Active Substance: LORAZEPAM
     Dosage: 0.25MG OTHER
     Route: 067
     Dates: start: 20150421, end: 20150423

REACTIONS (8)
  - Mental status changes [None]
  - Enteritis [None]
  - Pneumonia aspiration [None]
  - Mucosal inflammation [None]
  - Somnolence [None]
  - Tachycardia [None]
  - Hypoxia [None]
  - Pyrexia [None]

NARRATIVE: CASE EVENT DATE: 20150423
